FAERS Safety Report 19908890 (Version 1)
Quarter: 2021Q4

REPORT INFORMATION
  Report Type: Spontaneous
  Country: US (occurrence: US)
  Receive Date: 20211001
  Receipt Date: 20211001
  Transmission Date: 20220304
  Serious: Yes (Other)
  Sender: FDA-Public Use
  Company Number: US-TEVA-2021-US-1958863

PATIENT
  Age: 71 Year
  Sex: Female
  Weight: 65.32 kg

DRUGS (5)
  1. COPAXONE [Suspect]
     Active Substance: GLATIRAMER ACETATE
     Indication: Multiple sclerosis
     Dosage: 20 MG DAILY
     Route: 065
     Dates: start: 2006
  2. COPAXONE [Suspect]
     Active Substance: GLATIRAMER ACETATE
     Route: 065
  3. OMEPRAZOLE [Concomitant]
     Active Substance: OMEPRAZOLE
  4. CETIRIZINE [Concomitant]
     Active Substance: CETIRIZINE HYDROCHLORIDE
     Indication: Hypersensitivity
     Dosage: AS NEEDED
  5. XANAX [Concomitant]
     Active Substance: ALPRAZOLAM
     Dosage: AS NEEDED (NORMALLY TAKE TWICE A YEAR)

REACTIONS (5)
  - Breast cancer [Recovered/Resolved]
  - Injection site pruritus [Recovering/Resolving]
  - Feeling abnormal [Recovered/Resolved]
  - Injection site erythema [Recovering/Resolving]
  - Immediate post-injection reaction [Unknown]

NARRATIVE: CASE EVENT DATE: 20070101
